FAERS Safety Report 14699501 (Version 1)
Quarter: 2018Q1

REPORT INFORMATION
  Report Type: Spontaneous
  Country: US (occurrence: US)
  Receive Date: 20180329
  Receipt Date: 20180329
  Transmission Date: 20180509
  Serious: No
  Sender: FDA-Public Use
  Company Number: None

PATIENT
  Age: 60 Year
  Sex: Female
  Weight: 44.1 kg

DRUGS (3)
  1. BREGG^S VINEGAR [Concomitant]
  2. PRALUENT [Suspect]
     Active Substance: ALIROCUMAB
     Indication: BLOOD CHOLESTEROL INCREASED
     Dosage: ?          OTHER FREQUENCY:EVERY TWO WEEKS;?
     Route: 058
     Dates: start: 20180118, end: 20180306
  3. FISH OIL [Concomitant]
     Active Substance: FISH OIL

REACTIONS (12)
  - Rectal haemorrhage [None]
  - Wrong technique in device usage process [None]
  - Sinus disorder [None]
  - Contusion [None]
  - Bronchitis [None]
  - Haematochezia [None]
  - Oral pruritus [None]
  - Ear pruritus [None]
  - Vaginal haemorrhage [None]
  - Abdominal pain upper [None]
  - Pruritus [None]
  - Abdominal pain [None]

NARRATIVE: CASE EVENT DATE: 20180201
